FAERS Safety Report 4424077-2 (Version None)
Quarter: 2004Q3

REPORT INFORMATION
  Report Type: 
  Country: None (occurrence: None)
  Receive Date: 20040812
  Receipt Date: 20040726
  Transmission Date: 20050211
  Serious: Yes (Other)
  Sender: FDA-Public Use
  Company Number: PHEH2004US08048

PATIENT
  Age: 46 Year
  Sex: Female

DRUGS (4)
  1. ZELNORM [Suspect]
     Indication: IRRITABLE BOWEL SYNDROME
     Dosage: 6 MG, BID
     Route: 048
     Dates: start: 20040701, end: 20040725
  2. PROZAC [Concomitant]
     Indication: ANXIETY
  3. XANAX [Concomitant]
     Indication: PANIC ATTACK
  4. ZYRTEC [Concomitant]
     Indication: HYPERSENSITIVITY
     Dosage: UNK, UNK

REACTIONS (10)
  - ABDOMINAL PAIN [None]
  - ABDOMINAL PAIN LOWER [None]
  - BACK PAIN [None]
  - CHROMATURIA [None]
  - DYSURIA [None]
  - FLANK PAIN [None]
  - GROIN PAIN [None]
  - NAUSEA [None]
  - OVARIAN CYST [None]
  - VERTIGO [None]
